FAERS Safety Report 6397902-6 (Version None)
Quarter: 2009Q4

REPORT INFORMATION
  Report Type: 
  Country: None (occurrence: None)
  Receive Date: 20091013
  Receipt Date: 20091001
  Transmission Date: 20100525
  Serious: No
  Sender: FDA-Public Use
  Company Number: US-B.I. PHARMACEUTICALS,INC./RIDGEFIELD-2009-BP-11461BP

PATIENT
  Age: 70 Year
  Sex: Female
  Weight: 90.72 kg

DRUGS (3)
  1. MICARDIS HCT [Suspect]
     Indication: HYPERTENSION
     Route: 048
     Dates: start: 20091001
  2. CADUET [Suspect]
     Indication: HYPERTENSION
     Dates: start: 20091001
  3. LASIX [Concomitant]
     Indication: CARDIAC FAILURE CONGESTIVE

REACTIONS (2)
  - ABDOMINAL PAIN [None]
  - DIARRHOEA [None]
